FAERS Safety Report 12669401 (Version 1)
Quarter: 2016Q3

REPORT INFORMATION
  Report Type: Report from Study
  Country: GB (occurrence: GB)
  Receive Date: 20160819
  Receipt Date: 20160819
  Transmission Date: 20161109
  Serious: Yes (Hospitalization)
  Sender: FDA-Public Use
  Company Number: GB-COVIS PHARMA S.A.R.L.-2016COV00066

PATIENT
  Age: 58 Year
  Sex: Female

DRUGS (2)
  1. RILUZOLE. [Suspect]
     Active Substance: RILUZOLE
  2. AMILORIDE HYDROCHLORIDE. [Suspect]
     Active Substance: AMILORIDE HYDROCHLORIDE

REACTIONS (2)
  - Bladder neoplasm [Recovered/Resolved]
  - Calculus bladder [Recovered/Resolved]

NARRATIVE: CASE EVENT DATE: 20160707
